FAERS Safety Report 21121405 (Version 1)
Quarter: 2022Q3

REPORT INFORMATION
  Report Type: Report from Study
  Country: IT (occurrence: IT)
  Receive Date: 20220722
  Receipt Date: 20220722
  Transmission Date: 20221027
  Serious: Yes (Death, Life-Threatening, Other)
  Sender: FDA-Public Use
  Company Number: IT-BRISTOL-MYERS SQUIBB COMPANY-2022-076673

PATIENT
  Age: 67 Year
  Sex: Male
  Weight: 87 kg

DRUGS (3)
  1. OPDIVO [Suspect]
     Active Substance: NIVOLUMAB
     Indication: Pleural mesothelioma
     Dosage: 2 WEEKS
     Route: 065
     Dates: start: 20220523
  2. OPDIVO [Suspect]
     Active Substance: NIVOLUMAB
     Route: 065
     Dates: start: 20220606
  3. YERVOY [Suspect]
     Active Substance: IPILIMUMAB
     Indication: Pleural mesothelioma
     Dosage: 6 WEEKS
     Route: 065
     Dates: start: 20220523, end: 20220523

REACTIONS (2)
  - Immune-mediated enterocolitis [Fatal]
  - Shock [Fatal]

NARRATIVE: CASE EVENT DATE: 20220612
